FAERS Safety Report 4975188-4 (Version None)
Quarter: 2006Q2

REPORT INFORMATION
  Report Type: 
  Country: None (occurrence: None)
  Receive Date: 20060417
  Receipt Date: 20060417
  Transmission Date: 20061013
  Serious: No
  Sender: FDA-Public Use
  Company Number: None

PATIENT
  Age: 51 Year
  Sex: Female
  Weight: 58.9676 kg

DRUGS (3)
  1. PAXIL CR [Suspect]
     Indication: DEPRESSION
     Dosage: 12.5 MG Q DAY PO
     Route: 048
     Dates: start: 20051110, end: 20060315
  2. PAXIL [Suspect]
     Dosage: 10 MG Q DAY PO
     Route: 048
     Dates: start: 20020510, end: 20060415
  3. PREVACID [Concomitant]

REACTIONS (5)
  - ASTHENIA [None]
  - FALL [None]
  - NEURALGIA [None]
  - NEUROMYOPATHY [None]
  - TREMOR [None]
